FAERS Safety Report 5487313-X (Version None)
Quarter: 2007Q4

REPORT INFORMATION
  Report Type: 
  Country: None (occurrence: None)
  Receive Date: 20071016
  Receipt Date: 20071012
  Transmission Date: 20080405
  Serious: Yes (Hospitalization)
  Sender: FDA-Public Use
  Company Number: GB-MERCK-0710GBR00078

PATIENT
  Age: 45 Year
  Sex: Female
  Weight: 70 kg

DRUGS (18)
  1. FOSAMAX [Suspect]
     Route: 065
  2. CALCIUM CARBONATE AND CHOLECALCIFEROL [Concomitant]
     Route: 065
  3. ASCORBIC ACID [Concomitant]
     Route: 065
  4. ASCORBIC ACID [Concomitant]
     Route: 065
  5. DIAZEPAM [Concomitant]
     Route: 065
  6. ESOMEPRAZOLE [Concomitant]
     Route: 065
  7. ETORICOXIB [Concomitant]
     Route: 065
  8. FOLIC ACID [Concomitant]
     Route: 065
  9. MINERALS (UNSPECIFIED) AND VITAMINS (UNSPECIFIED) [Concomitant]
     Route: 065
     Dates: start: 20070924
  10. METHOTREXATE [Concomitant]
     Route: 065
  11. VITAMINS (UNSPECIFIED) [Concomitant]
     Route: 065
  12. MESALAMINE [Concomitant]
     Route: 065
  13. PREDNISOLONE [Concomitant]
     Route: 065
  14. PREDNISOLONE [Concomitant]
     Route: 065
  15. PROPRANOLOL HYDROCHLORIDE [Concomitant]
     Route: 065
  16. RISEDRONATE SODIUM [Concomitant]
     Route: 065
  17. SERTRALINE HYDROCHLORIDE [Concomitant]
     Route: 065
  18. TRAMADOL HYDROCHLORIDE [Concomitant]
     Route: 065

REACTIONS (2)
  - TOOTH ABSCESS [None]
  - TOOTH DISORDER [None]
